FAERS Safety Report 9782319 (Version 3)
Quarter: 2015Q2

REPORT INFORMATION
  Report Type: Spontaneous
  Country: JP (occurrence: JP)
  Receive Date: 20131226
  Receipt Date: 20150611
  Transmission Date: 20150821
  Serious: Yes (Death)
  Sender: FDA-Public Use
  Company Number: JP-ELI_LILLY_AND_COMPANY-JP201306004640

PATIENT
  Age: 55 Year
  Sex: Male

DRUGS (18)
  1. PHENOBARBITAL. [Concomitant]
     Active Substance: PHENOBARBITAL
     Route: 065
  2. CONTOMIN                           /00011902/ [Concomitant]
     Active Substance: CHLORPROMAZINE HYDROCHLORIDE
     Route: 065
  3. ZYPREXA [Suspect]
     Active Substance: OLANZAPINE
     Dosage: 10 MG, BID
     Route: 048
     Dates: start: 200708, end: 20110122
  4. LIMAS [Concomitant]
     Active Substance: LITHIUM CARBONATE
     Indication: PRODUCT USED FOR UNKNOWN INDICATION
     Dosage: 200 MG, TID
     Route: 048
     Dates: start: 200708
  5. VEGETAMIN A [Concomitant]
     Active Substance: CHLORPROMAZINE HYDROCHLORIDE\PHENOBARBITAL\PROMETHAZINE
     Indication: PRODUCT USED FOR UNKNOWN INDICATION
     Dosage: UNK
     Dates: start: 200708
  6. SENNOSIDE A+B CALCIUM [Concomitant]
     Active Substance: SENNOSIDES A AND B
     Indication: PRODUCT USED FOR UNKNOWN INDICATION
     Dosage: 60 MG, QD
     Route: 048
     Dates: start: 200708
  7. DEPAKENE [Concomitant]
     Active Substance: VALPROIC ACID
     Indication: PRODUCT USED FOR UNKNOWN INDICATION
     Dosage: 4 ML, TID
     Route: 048
     Dates: start: 20110105
  8. GASTER [Concomitant]
     Active Substance: FAMOTIDINE
     Indication: PRODUCT USED FOR UNKNOWN INDICATION
     Dosage: 20 MG, BID
     Route: 048
     Dates: start: 20110105
  9. VALERIN                            /00228502/ [Concomitant]
     Active Substance: VALPROATE SODIUM
     Indication: PRODUCT USED FOR UNKNOWN INDICATION
     Dosage: 200 MG, TID
     Route: 048
     Dates: start: 200708
  10. GASMOTIN [Concomitant]
     Active Substance: MOSAPRIDE CITRATE
     Indication: PRODUCT USED FOR UNKNOWN INDICATION
     Dosage: 5 MG, TID
     Route: 048
     Dates: start: 200708
  11. PANTETHINE [Concomitant]
     Active Substance: PANTETHINE
     Indication: PRODUCT USED FOR UNKNOWN INDICATION
     Dosage: 100 MG, TID
     Route: 048
     Dates: start: 200708
  12. NEOPERIDOL [Concomitant]
     Active Substance: HALOPERIDOL
     Indication: PRODUCT USED FOR UNKNOWN INDICATION
     Dosage: 100 MG, UNK
     Route: 030
     Dates: start: 200708
  13. SENNOSIDE A+B CALCIUM [Concomitant]
     Active Substance: SENNOSIDES A AND B
     Dosage: 36 MG, QD
     Route: 048
     Dates: start: 20110113
  14. SEFTAC [Concomitant]
     Active Substance: TEPRENONE
     Indication: PRODUCT USED FOR UNKNOWN INDICATION
     Dosage: 0.5 MG, TID
     Route: 048
     Dates: start: 20110113
  15. DORAL [Concomitant]
     Active Substance: QUAZEPAM
     Indication: PRODUCT USED FOR UNKNOWN INDICATION
     Dosage: 15 MG, QD
     Route: 048
     Dates: start: 200708
  16. DEPAKENE [Concomitant]
     Active Substance: VALPROIC ACID
     Dosage: 200 MG, TID
     Route: 048
     Dates: start: 20110113
  17. PYRETHIA                           /00033002/ [Concomitant]
     Route: 065
  18. QUAZEPAM. [Concomitant]
     Active Substance: QUAZEPAM
     Route: 065

REACTIONS (7)
  - Toxicity to various agents [Fatal]
  - C-reactive protein increased [Unknown]
  - Sudden death [Fatal]
  - White blood cell count increased [Unknown]
  - Pyrexia [Recovered/Resolved]
  - Drug interaction [Unknown]
  - Drug level increased [Unknown]

NARRATIVE: CASE EVENT DATE: 20110112
